FAERS Safety Report 16686488 (Version 1)
Quarter: 2019Q3

REPORT INFORMATION
  Report Type: Spontaneous
  Country: GB (occurrence: GB)
  Receive Date: 20190809
  Receipt Date: 20190809
  Transmission Date: 20191004
  Serious: Yes (Hospitalization)
  Sender: FDA-Public Use
  Company Number: GB-SA-2019SA210103

PATIENT
  Age: 78 Year
  Sex: Female
  Weight: 70 kg

DRUGS (12)
  1. SULFASALAZINE. [Suspect]
     Active Substance: SULFASALAZINE
     Indication: RHEUMATOID ARTHRITIS
     Dosage: 2 G, QD
     Route: 048
     Dates: start: 20110426
  2. TINZAPARIN [Concomitant]
     Active Substance: TINZAPARIN
  3. LOSARTAN. [Concomitant]
     Active Substance: LOSARTAN
  4. OMEPRAZOLE. [Concomitant]
     Active Substance: OMEPRAZOLE
  5. LEFLUNOMIDE. [Suspect]
     Active Substance: LEFLUNOMIDE
     Indication: RHEUMATOID ARTHRITIS
     Dosage: 10 MG, QD
     Route: 048
     Dates: start: 20120327
  6. BENDROFLUMETHIAZIDE [Concomitant]
     Active Substance: BENDROFLUMETHIAZIDE
  7. ONDANSETRON [Concomitant]
     Active Substance: ONDANSETRON
  8. ORAMORPH SR SUSTAINED RELEASE [Concomitant]
     Active Substance: MORPHINE SULFATE
  9. CARBOCISTEINE [Concomitant]
     Active Substance: CARBOCYSTEINE
  10. BUTRANS [Concomitant]
     Active Substance: BUPRENORPHINE
  11. PARACETAMOL [Concomitant]
     Active Substance: ACETAMINOPHEN
  12. CITALOPRAM [Concomitant]
     Active Substance: CITALOPRAM HYDROBROMIDE

REACTIONS (2)
  - Neutropenia [Recovered/Resolved]
  - Folate deficiency [Recovered/Resolved]

NARRATIVE: CASE EVENT DATE: 20190709
